FAERS Safety Report 10385699 (Version 1)
Quarter: 2014Q3

REPORT INFORMATION
  Report Type: Spontaneous
  Country: BE (occurrence: BE)
  Receive Date: 20140814
  Receipt Date: 20140814
  Transmission Date: 20150326
  Serious: Yes (Other)
  Sender: FDA-Public Use
  Company Number: BE-PFIZER INC-2014223863

PATIENT
  Age: 32 Year
  Sex: Female

DRUGS (1)
  1. SOSTILAR [Suspect]
     Active Substance: CABERGOLINE
     Dosage: 3 TABLETS WEEKLY
     Route: 048

REACTIONS (2)
  - Infertility [Unknown]
  - Abortion spontaneous [Unknown]
